FAERS Safety Report 7283401-6 (Version None)
Quarter: 2011Q1

REPORT INFORMATION
  Report Type: 
  Country: None (occurrence: None)
  Receive Date: 20110209
  Receipt Date: 20100916
  Transmission Date: 20110831
  Serious: No
  Sender: FDA-Public Use
  Company Number: A0881474A

PATIENT
  Age: 52 Year
  Sex: Female

DRUGS (3)
  1. AMITIZA [Concomitant]
  2. PAXIL [Suspect]
     Indication: IRRITABLE BOWEL SYNDROME
     Route: 048
  3. PAROXETINE HCL [Suspect]
     Indication: IRRITABLE BOWEL SYNDROME
     Dosage: 20MG PER DAY
     Route: 048

REACTIONS (6)
  - BACK PAIN [None]
  - FLATULENCE [None]
  - DIARRHOEA [None]
  - OFF LABEL USE [None]
  - ABDOMINAL DISTENSION [None]
  - CONSTIPATION [None]
